FAERS Safety Report 10410496 (Version 1)
Quarter: 2014Q3

REPORT INFORMATION
  Report Type: Spontaneous
  Country: US (occurrence: US)
  Receive Date: 20140826
  Receipt Date: 20140826
  Transmission Date: 20150326
  Serious: Yes (Other)
  Sender: FDA-Public Use
  Company Number: US-PFIZER INC-2014233375

PATIENT
  Age: 49 Year
  Sex: Female
  Weight: 88.44 kg

DRUGS (4)
  1. VITAMIN D [Concomitant]
     Active Substance: CHOLECALCIFEROL
     Dosage: UNK
  2. CALCIUM [Concomitant]
     Active Substance: CALCIUM
     Dosage: UNK
  3. AROMASIN [Suspect]
     Active Substance: EXEMESTANE
     Indication: BREAST CANCER METASTATIC
     Dosage: UNK, 5 DAYS IN A WEEK
     Dates: start: 20130213
  4. AFINITOR [Interacting]
     Active Substance: EVEROLIMUS
     Indication: BREAST CANCER METASTATIC
     Dosage: UNK, 5 DAYS IN A WEEK
     Dates: start: 20130213

REACTIONS (2)
  - Drug interaction [Unknown]
  - Blood disorder [Unknown]
